FAERS Safety Report 9603775 (Version 2)
Quarter: 2013Q4

REPORT INFORMATION
  Report Type: Spontaneous
  Country: US (occurrence: US)
  Receive Date: 20131007
  Receipt Date: 20131227
  Transmission Date: 20140711
  Serious: No
  Sender: FDA-Public Use
  Company Number: US-B.I. PHARMACEUTICALS,INC./RIDGEFIELD-2013-BI-30554BP

PATIENT
  Age: 68 Year
  Sex: Female
  Weight: 71 kg

DRUGS (12)
  1. TRADJENTA [Suspect]
     Indication: DIABETES MELLITUS
     Dosage: 5 MG
     Route: 048
     Dates: start: 201304
  2. BAYER ASPIRIN [Concomitant]
     Indication: CARDIAC DISORDER
     Dosage: 81 MG
     Route: 048
     Dates: start: 2008
  3. OCCUPRESS [Concomitant]
     Indication: GLAUCOMA
     Dosage: FORMULATION: EYE DROPS, DOSE PER APPLICATION: 1 DROP EACH EYE; DAILY DOSE: 4 DROPS
     Dates: start: 2003
  4. CALCIUM AND VITAMIN D [Concomitant]
     Indication: SUPPLEMENTATION THERAPY
     Dosage: 1 ANZ
     Route: 048
     Dates: start: 1970
  5. COUMADIN [Concomitant]
     Indication: ATRIAL FIBRILLATION
     Dosage: 5 MG
     Route: 048
     Dates: start: 2003
  6. ENTOCORT [Concomitant]
     Indication: COLITIS
     Dosage: 9 MG
     Route: 048
     Dates: start: 2011
  7. LUMIGAN [Concomitant]
     Indication: GLAUCOMA
     Dosage: FORMULATION: EYE DROPS, DOSE PER APPLICATION: 1 DROP EACH EYE, DAILY DOSE: 4 DROPS
     Dates: start: 2003
  8. DIGOXIN [Concomitant]
     Indication: ATRIAL FIBRILLATION
     Dosage: 0.125 MG
     Route: 048
     Dates: start: 2003
  9. POTASSIUM CHLORIDE [Concomitant]
     Indication: MINERAL SUPPLEMENTATION
     Dosage: 120 MEQ
     Route: 048
     Dates: start: 1990
  10. TRIAMCINOLONE  HCTZ [Concomitant]
     Indication: DIURETIC THERAPY
     Dosage: DOSE PER APPLICATION: 75-50; DAILY DOSE: 75-50
     Route: 048
     Dates: start: 2003
  11. VERAPAMIL ER [Concomitant]
     Indication: ATRIAL FIBRILLATION
     Dosage: 180 MG
     Route: 048
     Dates: start: 2006
  12. LOVAZA [Concomitant]
     Indication: BLOOD TRIGLYCERIDES INCREASED
     Dosage: 4 G
     Route: 048
     Dates: start: 2009

REACTIONS (3)
  - Glycosylated haemoglobin increased [Unknown]
  - Oropharyngeal pain [Not Recovered/Not Resolved]
  - Weight increased [Unknown]
